FAERS Safety Report 8533217-5 (Version None)
Quarter: 2012Q3

REPORT INFORMATION
  Report Type: 
  Country: None (occurrence: None)
  Receive Date: 20120724
  Receipt Date: 20120718
  Transmission Date: 20120928
  Serious: Yes (Life-Threatening, Hospitalization)
  Sender: FDA-Public Use
  Company Number: FR-PFIZER INC-2012168657

PATIENT
  Age: 80 Year
  Sex: Male

DRUGS (8)
  1. AMLODIPINE BESYLATE [Suspect]
     Dosage: 5 MG, 1X/DAY
     Route: 048
     Dates: start: 20120401, end: 20120501
  2. LASIX [Suspect]
     Dosage: 40 MG, 1X/DAY
     Route: 048
     Dates: start: 20120301, end: 20120501
  3. POTASSIUM CHLORIDE [Suspect]
     Dosage: 2 DF, 1X/DAY
     Route: 048
     Dates: start: 20120427, end: 20120501
  4. ASPIRIN [Suspect]
     Dosage: 75 MG, 1X/DAY
     Route: 048
     Dates: start: 20120418, end: 20120501
  5. CALCIPARINE [Concomitant]
     Dosage: 0.4 ML, 2X/DAY
     Route: 042
     Dates: start: 20120418
  6. PANTOPRAZOLE [Suspect]
     Dosage: 20 MG, 1X/DAY
     Route: 048
     Dates: start: 20120401, end: 20120501
  7. PREVISCAN [Suspect]
     Indication: CARDIAC VALVE PROSTHESIS USER
     Dosage: UNK
     Route: 048
     Dates: start: 20120423, end: 20120501
  8. FERROUS SULFATE TAB [Suspect]
     Dosage: 2 DF, 1X/DAY
     Route: 048
     Dates: start: 20120401, end: 20120501

REACTIONS (2)
  - TUBULOINTERSTITIAL NEPHRITIS [None]
  - AGRANULOCYTOSIS [None]
